FAERS Safety Report 5815012-0 (Version None)
Quarter: 2008Q3

REPORT INFORMATION
  Report Type: 
  Country: None (occurrence: None)
  Receive Date: 20080718
  Receipt Date: 20080714
  Transmission Date: 20090109
  Serious: Yes (Hospitalization)
  Sender: FDA-Public Use
  Company Number: B0500961A

PATIENT
  Age: 66 Year
  Sex: Male

DRUGS (6)
  1. VALTREX [Suspect]
     Indication: HERPES ZOSTER
     Dosage: 1000MG THREE TIMES PER DAY
     Route: 048
     Dates: start: 20071212, end: 20071216
  2. ACIROVEC [Suspect]
     Indication: HERPES ZOSTER
     Dosage: 750MG PER DAY
     Route: 042
     Dates: start: 20071212, end: 20071213
  3. DIOVAN [Concomitant]
     Indication: HYPERTENSION
     Dosage: 40MG PER DAY
     Route: 048
     Dates: start: 20071023
  4. ARTIST [Concomitant]
     Indication: HYPERTENSION
     Dosage: 1.25MG PER DAY
     Route: 048
     Dates: start: 20070525
  5. LENDORMIN [Concomitant]
     Indication: INSOMNIA
     Dosage: .25MG PER DAY
     Route: 048
     Dates: start: 20040507
  6. SEISHOKU [Concomitant]
     Dosage: 100ML PER DAY
     Route: 042
     Dates: start: 20071212, end: 20071213

REACTIONS (2)
  - RENAL FAILURE ACUTE [None]
  - URINE OUTPUT DECREASED [None]
